FAERS Safety Report 16875021 (Version 3)
Quarter: 2019Q4

REPORT INFORMATION
  Report Type: Report from Study
  Country: US (occurrence: US)
  Receive Date: 20191001
  Receipt Date: 20191227
  Transmission Date: 20200122
  Serious: Yes (Hospitalization)
  Sender: FDA-Public Use
  Company Number: US-ACTELION-A-NJ2019-194662

PATIENT
  Age: 67 Year
  Sex: Female
  Weight: 112.47 kg

DRUGS (6)
  1. TADALAFIL. [Concomitant]
     Active Substance: TADALAFIL
  2. UPTRAVI [Suspect]
     Active Substance: SELEXIPAG
     Indication: PULMONARY ARTERIAL HYPERTENSION
     Dosage: 200 MCG, BID
     Route: 048
  3. XARELTO [Concomitant]
     Active Substance: RIVAROXABAN
  4. UPTRAVI [Suspect]
     Active Substance: SELEXIPAG
     Dosage: 800 MCG, BID
     Route: 048
  5. OPSUMIT [Suspect]
     Active Substance: MACITENTAN
     Indication: PULMONARY ARTERIAL HYPERTENSION
     Dosage: 10 MG, QD
     Route: 048
     Dates: end: 20190813
  6. WARFARIN [Concomitant]
     Active Substance: WARFARIN

REACTIONS (6)
  - Fluid retention [Unknown]
  - Hospitalisation [Unknown]
  - Nasal congestion [Unknown]
  - Cough [Unknown]
  - Arthralgia [Unknown]
  - Nasopharyngitis [Unknown]

NARRATIVE: CASE EVENT DATE: 20190817
